FAERS Safety Report 15262999 (Version 3)
Quarter: 2018Q3

REPORT INFORMATION
  Report Type: Report from Study
  Country: None (occurrence: US)
  Receive Date: 20180810
  Receipt Date: 20180914
  Transmission Date: 20181010
  Serious: Yes (Hospitalization, Other)
  Sender: FDA-Public Use
  Company Number: US-ABBVIE-18K-163-2442670-00

PATIENT
  Age: 42 Year
  Sex: Male

DRUGS (4)
  1. HUMIRA [Suspect]
     Active Substance: ADALIMUMAB
     Route: 058
     Dates: start: 20170323, end: 201711
  2. HUMIRA [Suspect]
     Active Substance: ADALIMUMAB
     Route: 058
     Dates: start: 20180616
  3. HUMIRA [Suspect]
     Active Substance: ADALIMUMAB
     Indication: PSORIASIS
     Dosage: DAY ONE
     Route: 058
     Dates: start: 20170309, end: 20170309
  4. HUMIRA [Suspect]
     Active Substance: ADALIMUMAB
     Indication: HIDRADENITIS
     Dosage: DAY SEVEN
     Route: 058
     Dates: start: 20170316, end: 20170316

REACTIONS (29)
  - Fluid overload [Unknown]
  - Renal failure [Unknown]
  - Anion gap increased [Unknown]
  - Frustration tolerance decreased [Unknown]
  - Pruritus [Unknown]
  - Pain in extremity [Unknown]
  - Rash papular [Unknown]
  - Hypovolaemia [Unknown]
  - Blood creatinine increased [Unknown]
  - Weight decreased [Unknown]
  - Blood urea increased [Unknown]
  - Haematocrit decreased [Unknown]
  - Anger [Unknown]
  - Blood urea nitrogen/creatinine ratio increased [Unknown]
  - General physical condition abnormal [Unknown]
  - Blood creatinine increased [Unknown]
  - Helplessness [Unknown]
  - Chronic kidney disease [Not Recovered/Not Resolved]
  - Skin irritation [Unknown]
  - Cardiac disorder [Unknown]
  - Peripheral swelling [Unknown]
  - Dyspnoea [Unknown]
  - Treatment noncompliance [Unknown]
  - Blood calcium decreased [Unknown]
  - Emotional distress [Unknown]
  - Chills [Unknown]
  - Pain of skin [Unknown]
  - Dehydration [Unknown]
  - Psoriasis [Recovered/Resolved]

NARRATIVE: CASE EVENT DATE: 20171226
